FAERS Safety Report 9008581 (Version 1)
Quarter: 2013Q1

REPORT INFORMATION
  Report Type: Report from Study
  Country: DE (occurrence: DE)
  Receive Date: 20130111
  Receipt Date: 20130111
  Transmission Date: 20140127
  Serious: Yes (Death, Life-Threatening, Hospitalization, Other)
  Sender: FDA-Public Use
  Company Number: DE-PFIZER INC-2013009041

PATIENT
  Age: 78 Year
  Sex: Female
  Weight: 70 kg

DRUGS (15)
  1. IRINOTECAN HCL [Suspect]
     Indication: GLIOBLASTOMA
     Dosage: ONCE IN 2 WEEKS
     Route: 042
  2. TEMOZOLOMIDE [Suspect]
     Indication: GLIOBLASTOMA
     Dosage: 140 MG, DAILY, ONCE IN 2 WEEKS
     Route: 048
     Dates: start: 20101116
  3. BEVACIZUMAB [Suspect]
     Indication: GLIOBLASTOMA
     Dosage: UNK
     Route: 042
  4. DEXAMETHASONE [Concomitant]
     Dosage: 4 MG, UNK
     Dates: start: 20101025, end: 20101216
  5. DEXAMETHASONE [Concomitant]
     Dosage: 12 MG, UNK
     Dates: start: 20101217, end: 20101225
  6. DEXAMETHASONE [Concomitant]
     Dosage: 16 MG, UNK
     Dates: start: 20101226, end: 20110103
  7. DEXAMETHASONE [Concomitant]
     Dosage: 6 MG, UNK
     Dates: start: 20110104, end: 20110107
  8. METOPROLOL [Concomitant]
  9. PANTOPRAZOLE [Concomitant]
  10. ASPIRIN [Concomitant]
  11. ONDANSETRON [Concomitant]
  12. MACROGOL [Concomitant]
  13. HEPARIN SODIUM [Concomitant]
     Dosage: UNK
     Dates: start: 20101126, end: 20101227
  14. CIPROBAY [Concomitant]
     Dosage: UNK
     Dates: start: 20110107, end: 201101
  15. DIAZEPAM [Concomitant]

REACTIONS (6)
  - General physical health deterioration [Recovered/Resolved with Sequelae]
  - Pulmonary embolism [Not Recovered/Not Resolved]
  - Thrombocytopenia [Recovered/Resolved]
  - Disease progression [Fatal]
  - Glioblastoma [Fatal]
  - Convulsion [Recovered/Resolved]
